FAERS Safety Report 5584790-0 (Version None)
Quarter: 2008Q1

REPORT INFORMATION
  Report Type: 
  Country: None (occurrence: None)
  Receive Date: 20080103
  Receipt Date: 20071217
  Transmission Date: 20080703
  Serious: Yes (Hospitalization, Other)
  Sender: FDA-Public Use
  Company Number: 2007S1013666

PATIENT
  Age: 29 Year
  Sex: Female

DRUGS (4)
  1. CARBAMAZEPINE [Suspect]
     Indication: PARTIAL SEIZURES
     Dosage: 1600 MG; DAILY
  2. FLUCONAZOLE [Suspect]
     Indication: MICROSPORUM INFECTION
     Dosage: 150 MG; DAILY
  3. LAMOTRIGINE [Concomitant]
  4. BARBEXACLONE (BARBEXACLONE) [Concomitant]

REACTIONS (10)
  - CEREBELLAR SYNDROME [None]
  - DIPLOPIA [None]
  - DIZZINESS [None]
  - DRUG TOXICITY [None]
  - GAIT DISTURBANCE [None]
  - NAUSEA [None]
  - NYSTAGMUS [None]
  - OSCILLOPSIA [None]
  - VISION BLURRED [None]
  - VOMITING [None]
